FAERS Safety Report 9063956 (Version 2)
Quarter: 2013Q1

REPORT INFORMATION
  Report Type: Report from Study
  Country: AU (occurrence: AU)
  Receive Date: 20130213
  Receipt Date: 20130313
  Transmission Date: 20140127
  Serious: Yes (Hospitalization)
  Sender: FDA-Public Use
  Company Number: AU-ROCHE-1189260

PATIENT
  Sex: Female

DRUGS (1)
  1. ZELBORAF [Suspect]
     Indication: METASTATIC MALIGNANT MELANOMA
     Route: 048
     Dates: start: 20130126, end: 20130201

REACTIONS (5)
  - Rash erythematous [Unknown]
  - Blister [Unknown]
  - Mouth ulceration [Unknown]
  - Rash erythematous [Unknown]
  - Stevens-Johnson syndrome [Recovering/Resolving]
